FAERS Safety Report 7883422-6 (Version None)
Quarter: 2011Q4

REPORT INFORMATION
  Report Type: 
  Country: None (occurrence: None)
  Receive Date: 20111102
  Receipt Date: 20111021
  Transmission Date: 20120403
  Serious: Yes (Hospitalization)
  Sender: FDA-Public Use
  Company Number: GB-JNJFOC-20111010796

PATIENT
  Sex: Male
  Weight: 30.2 kg

DRUGS (4)
  1. REMICADE [Suspect]
     Indication: CROHN'S DISEASE
     Route: 042
     Dates: start: 20100219, end: 20110317
  2. ADALIMUMAB [Concomitant]
  3. METHOTREXATE [Concomitant]
     Indication: CROHN'S DISEASE
  4. ADALIMUMAB [Concomitant]
     Indication: CROHN'S DISEASE
     Dates: start: 20110919

REACTIONS (1)
  - CROHN'S DISEASE [None]
